FAERS Safety Report 20538874 (Version 1)
Quarter: 2022Q1

REPORT INFORMATION
  Report Type: Spontaneous
  Country: FR (occurrence: FR)
  Receive Date: 20220302
  Receipt Date: 20220302
  Transmission Date: 20220423
  Serious: Yes (Other)
  Sender: FDA-Public Use
  Company Number: FR-GLAXOSMITHKLINE-FRCH2022EME007837

PATIENT
  Age: 53 Year
  Sex: Female

DRUGS (6)
  1. ADVIL [Suspect]
     Active Substance: IBUPROFEN
     Indication: Nasopharyngitis
     Dosage: UNK
     Dates: start: 202112
  2. ADVIL [Suspect]
     Active Substance: IBUPROFEN
     Indication: Vocal cord disorder
  3. PREDNISOLONE [Suspect]
     Active Substance: PREDNISOLONE
     Indication: Vocal cord disorder
     Dosage: 20 MG, TID
     Dates: start: 20220102, end: 20220108
  4. DOLIPRANE [Suspect]
     Active Substance: ACETAMINOPHEN
     Indication: Nasopharyngitis
     Dosage: UNK
     Dates: start: 202112
  5. DOLIPRANE [Suspect]
     Active Substance: ACETAMINOPHEN
     Indication: Vocal cord disorder
  6. DOLIPRANE [Suspect]
     Active Substance: ACETAMINOPHEN
     Indication: Laryngitis

REACTIONS (6)
  - Deafness [Unknown]
  - Hypertrichosis [Unknown]
  - Vocal cord disorder [Unknown]
  - Anxiety [Unknown]
  - Depressed mood [Unknown]
  - Off label use [Unknown]

NARRATIVE: CASE EVENT DATE: 20220101
